FAERS Safety Report 9272034 (Version 3)
Quarter: 2013Q2

REPORT INFORMATION
  Report Type: Spontaneous
  Country: ES (occurrence: DE)
  Receive Date: 20130506
  Receipt Date: 20130613
  Transmission Date: 20140414
  Serious: Yes (Life-Threatening, Hospitalization)
  Sender: FDA-Public Use
  Company Number: DE-FRI-1000044938

PATIENT
  Sex: Male

DRUGS (9)
  1. ACLIDINIUM [Suspect]
     Indication: CHRONIC OBSTRUCTIVE PULMONARY DISEASE
     Dosage: 644 MCG
     Dates: start: 20130419, end: 20130419
  2. ASS [Concomitant]
     Dates: start: 2007
  3. BELOC ZOK [Concomitant]
     Dates: start: 2007
  4. ALLOBETA [Concomitant]
     Indication: GOUT
  5. PANTOPRAZOL [Concomitant]
     Indication: PEPTIC ULCER
  6. TORASEMID [Concomitant]
     Dates: start: 2007
  7. FOSTER [Concomitant]
     Indication: CHRONIC OBSTRUCTIVE PULMONARY DISEASE
  8. SYMBICORT [Concomitant]
     Indication: ASTHMA
  9. SYMBICORT [Concomitant]
     Indication: CHRONIC OBSTRUCTIVE PULMONARY DISEASE

REACTIONS (1)
  - Angioedema [Recovered/Resolved]
